FAERS Safety Report 4615965-2 (Version None)
Quarter: 2005Q1

REPORT INFORMATION
  Report Type: 
  Country: None (occurrence: None)
  Receive Date: 20050318
  Receipt Date: 20050302
  Transmission Date: 20050727
  Serious: Yes (Hospitalization)
  Sender: FDA-Public Use
  Company Number: 2005-0008114

PATIENT
  Sex: Male

DRUGS (7)
  1. VIREAD [Suspect]
     Dates: start: 20041101
  2. DDI (DIDANOSINE) [Concomitant]
  3. ATAZANAVIR (ATAZANAVIR) [Concomitant]
  4. RITONAVIR (RITONAVIR) [Concomitant]
  5. PRAVASTATIN [Concomitant]
  6. FENOFIBRATE [Concomitant]
  7. BACTRIM [Concomitant]

REACTIONS (7)
  - BLOOD CREATININE INCREASED [None]
  - BLOOD POTASSIUM INCREASED [None]
  - BLOOD UREA INCREASED [None]
  - DEHYDRATION [None]
  - DIABETES MELLITUS [None]
  - EATING DISORDER [None]
  - FEELING ABNORMAL [None]
